FAERS Safety Report 10903984 (Version 1)
Quarter: 2015Q1

REPORT INFORMATION
  Report Type: Report from Study
  Country: US (occurrence: None)
  Receive Date: 20150306
  Receipt Date: 20150306
  Transmission Date: 20150721
  Serious: Yes (Other)
  Sender: FDA-Public Use
  Company Number: 2765390

PATIENT
  Age: 49 Year
  Sex: Female
  Weight: 57 kg

DRUGS (13)
  1. ZOFRAN [Concomitant]
     Active Substance: ONDANSETRON HYDROCHLORIDE
  2. KLONOPIN [Concomitant]
     Active Substance: CLONAZEPAM
  3. LOPRESSOR [Concomitant]
     Active Substance: METOPROLOL TARTRATE
  4. AMBIEN [Concomitant]
     Active Substance: ZOLPIDEM TARTRATE
  5. DEMEROL [Suspect]
     Active Substance: MEPERIDINE HYDROCHLORIDE
     Indication: PRODUCT USED FOR UNKNOWN INDICATION
  6. NOXAFIL [Concomitant]
     Active Substance: POSACONAZOLE
  7. NEURONTIN [Concomitant]
     Active Substance: GABAPENTIN
  8. DIPHENHYDRAMINE [Suspect]
     Active Substance: DIPHENHYDRAMINE
     Indication: PRODUCT USED FOR UNKNOWN INDICATION
     Dates: start: 20141117
  9. LEVAQUIN [Concomitant]
     Active Substance: LEVOFLOXACIN
  10. OXYCODONE [Concomitant]
     Active Substance: OXYCODONE
  11. ZOVIRAX [Concomitant]
     Active Substance: ACYCLOVIR
  12. EXJADE [Concomitant]
     Active Substance: DEFERASIROX
  13. KLOR-CON [Concomitant]
     Active Substance: POTASSIUM CHLORIDE

REACTIONS (6)
  - Mental status changes [None]
  - Febrile neutropenia [None]
  - Chills [None]
  - Headache [None]
  - Pupillary reflex impaired [None]
  - Lethargy [None]

NARRATIVE: CASE EVENT DATE: 20141210
